FAERS Safety Report 7089221-X (Version None)
Quarter: 2010Q4

REPORT INFORMATION
  Report Type: 
  Country: None (occurrence: None)
  Receive Date: 20101029
  Receipt Date: 20101014
  Transmission Date: 20110411
  Serious: Yes (Other)
  Sender: FDA-Public Use
  Company Number: AUR-APL-2010-02456

PATIENT
  Age: 49 Year
  Sex: Female

DRUGS (6)
  1. LAMOTRIGINE [Suspect]
     Indication: SCHIZOPHRENIA
     Dates: end: 20100801
  2. AMISULPRIDE [Suspect]
     Indication: SCHIZOPHRENIA
     Dates: end: 20100801
  3. CLOZAPINE [Suspect]
     Indication: SCHIZOPHRENIA
     Dosage: 600MG - ORAL
     Route: 048
     Dates: start: 20050207
  4. PAROXETINE HCL [Concomitant]
  5. RAMIPRIL [Concomitant]
  6. TEMAZEPAM [Concomitant]

REACTIONS (6)
  - BREAST ABSCESS [None]
  - BREAST CANCER [None]
  - INFLUENZA LIKE ILLNESS [None]
  - METASTASES TO SPINE [None]
  - PLATELET COUNT DECREASED [None]
  - WHITE BLOOD CELL COUNT DECREASED [None]
